FAERS Safety Report 11139987 (Version 1)
Quarter: 2015Q2

REPORT INFORMATION
  Report Type: Spontaneous
  Country: US (occurrence: US)
  Receive Date: 20150527
  Receipt Date: 20150527
  Transmission Date: 20150821
  Serious: Yes (Other)
  Sender: FDA-Public Use
  Company Number: US-PFIZER INC-2015176223

PATIENT
  Age: 71 Year
  Sex: Female
  Weight: 87 kg

DRUGS (1)
  1. AMLODIPINE BESILATE [Suspect]
     Active Substance: AMLODIPINE BESYLATE
     Indication: PROPHYLAXIS
     Dosage: UNK

REACTIONS (3)
  - Blood pressure inadequately controlled [Unknown]
  - Hypersensitivity [Unknown]
  - Drug ineffective [Unknown]
